FAERS Safety Report 25628520 (Version 1)
Quarter: 2025Q3

REPORT INFORMATION
  Report Type: Spontaneous
  Country: GB (occurrence: GB)
  Receive Date: 20250731
  Receipt Date: 20250731
  Transmission Date: 20251020
  Serious: Yes (Hospitalization, Other)
  Sender: TEVA
  Company Number: GB-MHRA-MIDB-40bc38d5-8f65-4c74-ae10-0f8897d7b1e2

PATIENT
  Age: 67 Year
  Sex: Female

DRUGS (17)
  1. OLANZAPINE [Suspect]
     Active Substance: OLANZAPINE
     Indication: Product used for unknown indication
     Dosage: EVERY NIGHT,7 TABLET - VL4
     Route: 065
     Dates: start: 20250521
  2. SERTRALINE [Concomitant]
     Active Substance: SERTRALINE HYDROCHLORIDE
     Indication: Product used for unknown indication
     Dosage: 7 TABLET - VL1
     Route: 065
     Dates: start: 20250521
  3. SERTRALINE [Concomitant]
     Active Substance: SERTRALINE HYDROCHLORIDE
     Indication: Product used for unknown indication
     Route: 065
     Dates: start: 20250521
  4. SENNA [Concomitant]
     Active Substance: SENNOSIDES
     Indication: Product used for unknown indication
     Dosage: ,56 TABLET - ON
     Route: 065
     Dates: start: 20250521
  5. ZOPICLONE [Concomitant]
     Active Substance: ZOPICLONE
     Indication: Product used for unknown indication
     Dosage: AT NIGHT,7 TABLET - VL4
     Route: 065
     Dates: start: 20250521
  6. IBUPROFEN [Concomitant]
     Active Substance: IBUPROFEN
     Indication: Product used for unknown indication
     Dosage: 10% GEL, 100 GRAM - PT?STATES NOT USING
     Route: 065
     Dates: start: 20241220
  7. Syonell [Concomitant]
     Indication: Product used for unknown indication
     Dosage: ONE TO BE TAKEN IN THE MORNING AND TWO TO BE TAKEN AT NIGHT,21 TABLET - 1OM,?2ON - NOT IN BLISTER
     Route: 065
     Dates: start: 20250521
  8. Syonell [Concomitant]
     Indication: Product used for unknown indication
     Dosage: 7 TABLET OM - NOT IN BLISTER
     Route: 065
     Dates: start: 20250521
  9. DIAZEPAM [Concomitant]
     Active Substance: DIAZEPAM
     Indication: Product used for unknown indication
     Dosage: AT NIGHT,7 TABLET - VL4
     Route: 065
     Dates: start: 20250521
  10. PROPRANOLOL [Concomitant]
     Active Substance: PROPRANOLOL HYDROCHLORIDE
     Indication: Product used for unknown indication
     Dosage: A DAY,21?TABLET - VL1, VL2, VL4
     Route: 065
     Dates: start: 20250521
  11. COCODAMOL [Concomitant]
     Active Substance: ACETAMINOPHEN\CODEINE PHOSPHATE
     Indication: Product used for unknown indication
     Route: 065
     Dates: start: 20250521
  12. LIDOCAINE [Concomitant]
     Active Substance: LIDOCAINE
     Indication: Product used for unknown indication
     Route: 065
  13. OMEPRAZOLE [Concomitant]
     Active Substance: OMEPRAZOLE
     Indication: Product used for unknown indication
     Route: 065
     Dates: start: 20250521
  14. POLYETHYLENE GLYCOLS [Concomitant]
     Active Substance: POLYETHYLENE GLYCOLS
     Indication: Product used for unknown indication
     Route: 065
     Dates: start: 20250520
  15. ATORVASTATIN [Concomitant]
     Active Substance: ATORVASTATIN
     Indication: Product used for unknown indication
     Dosage: 7 TABLET - VL4
     Route: 065
     Dates: start: 20250521
  16. VENTOLIN [Concomitant]
     Active Substance: ALBUTEROL SULFATE
     Indication: Product used for unknown indication
     Route: 065
     Dates: start: 20250515
  17. MIRTAZAPINE [Concomitant]
     Active Substance: MIRTAZAPINE
     Indication: Product used for unknown indication
     Dosage: AT NIGHT,7 TABLET - VL4 BUT?PT SAYS ITS TOO STRONG, SO DOESN^T TAKE
     Route: 065
     Dates: start: 20250521

REACTIONS (1)
  - Colitis ischaemic [Recovered/Resolved]
